FAERS Safety Report 8144420-0 (Version None)
Quarter: 2012Q1

REPORT INFORMATION
  Report Type: 
  Country: None (occurrence: None)
  Receive Date: 20120217
  Receipt Date: 20120207
  Transmission Date: 20120608
  Serious: Yes (Other)
  Sender: FDA-Public Use
  Company Number: US-JNJFOC-20120205015

PATIENT
  Sex: Female
  Weight: 61.24 kg

DRUGS (1)
  1. REMICADE [Suspect]
     Indication: RHEUMATOID ARTHRITIS
     Route: 042
     Dates: end: 20110101

REACTIONS (7)
  - PNEUMONIA [None]
  - DRY MOUTH [None]
  - MULTIPLE SYSTEM ATROPHY [None]
  - SINUSITIS [None]
  - BALANCE DISORDER [None]
  - ARTHRITIS [None]
  - HYPERSOMNIA [None]
